FAERS Safety Report 20090719 (Version 1)
Quarter: 2021Q4

REPORT INFORMATION
  Report Type: Spontaneous
  Country: CA (occurrence: CA)
  Receive Date: 20211119
  Receipt Date: 20211119
  Transmission Date: 20220303
  Serious: Yes (Death, Hospitalization)
  Sender: FDA-Public Use
  Company Number: CA-BAUSCH-BL-2021-037753

PATIENT
  Age: 71 Year
  Sex: Male

DRUGS (8)
  1. DILTIAZEM [Suspect]
     Active Substance: DILTIAZEM
     Indication: Product used for unknown indication
     Route: 065
  2. DILTIAZEM [Suspect]
     Active Substance: DILTIAZEM
     Indication: Product used for unknown indication
     Route: 065
  3. AMIODARONE [Suspect]
     Active Substance: AMIODARONE
     Indication: Product used for unknown indication
     Route: 065
  4. ATENOLOL [Suspect]
     Active Substance: ATENOLOL
     Indication: Product used for unknown indication
     Route: 065
  5. CILAZAPRIL ANHYDROUS [Suspect]
     Active Substance: CILAZAPRIL ANHYDROUS
     Indication: Product used for unknown indication
     Route: 065
  6. METOPROLOL [Suspect]
     Active Substance: METOPROLOL
     Indication: Product used for unknown indication
     Route: 065
  7. SOTALOL [Suspect]
     Active Substance: SOTALOL
     Indication: Product used for unknown indication
     Route: 065
  8. VERAPAMIL [Suspect]
     Active Substance: VERAPAMIL HYDROCHLORIDE
     Indication: Product used for unknown indication
     Dosage: TABLET (EXTENDED- RELEASE)
     Route: 048

REACTIONS (16)
  - Antiacetylcholine receptor antibody positive [Fatal]
  - Blood potassium increased [Fatal]
  - Cardiogenic shock [Fatal]
  - Ejection fraction decreased [Fatal]
  - Fatigue [Fatal]
  - Pacemaker generated rhythm [Fatal]
  - Toxicity to various agents [Fatal]
  - Ventricular hypokinesia [Fatal]
  - Drug interaction [Fatal]
  - Atrial fibrillation [Fatal]
  - Asthenia [Fatal]
  - Dyspnoea [Fatal]
  - Heart rate abnormal [Fatal]
  - Heart rate increased [Fatal]
  - Palpitations [Fatal]
  - Hypotension [Fatal]
